FAERS Safety Report 23611547 (Version 1)
Quarter: 2024Q1

REPORT INFORMATION
  Report Type: Spontaneous
  Country: US (occurrence: None)
  Receive Date: 20240308
  Receipt Date: 20240308
  Transmission Date: 20240410
  Serious: Yes (Death, Other)
  Sender: FDA-Public Use
  Company Number: 2024A055140

PATIENT
  Age: 25952 Day
  Sex: Female
  Weight: 77.1 kg

DRUGS (1)
  1. CALQUENCE [Suspect]
     Active Substance: ACALABRUTINIB
     Indication: Lymphocytic leukaemia
     Route: 048
     Dates: start: 2023, end: 202401

REACTIONS (3)
  - Bone marrow necrosis [Fatal]
  - Atrial fibrillation [Unknown]
  - Full blood count decreased [Unknown]

NARRATIVE: CASE EVENT DATE: 20240118
